FAERS Safety Report 7219891-4 (Version None)
Quarter: 2011Q1

REPORT INFORMATION
  Report Type: 
  Country: None (occurrence: None)
  Receive Date: 20110111
  Receipt Date: 20110110
  Transmission Date: 20110831
  Serious: Yes (Other)
  Sender: FDA-Public Use
  Company Number: SE-ROCHE-752338

PATIENT
  Sex: Female

DRUGS (1)
  1. AVASTIN [Suspect]
     Dosage: DRUG NAME: AVASTIN CONC FOR SOL FOR INF 25 MG/ML
     Route: 065

REACTIONS (2)
  - GRAND MAL CONVULSION [None]
  - CEREBRAL HAEMORRHAGE [None]
